FAERS Safety Report 13297304 (Version 2)
Quarter: 2021Q4

REPORT INFORMATION
  Report Type: Spontaneous
  Country: CN (occurrence: CN)
  Receive Date: 20170306
  Receipt Date: 20211118
  Transmission Date: 20220303
  Serious: Yes (Hospitalization, Other)
  Sender: FDA-Public Use
  Company Number: CN-GLAXOSMITHKLINE-CN2017GSK028986

PATIENT
  Age: 64 Year
  Sex: Female

DRUGS (2)
  1. HEPSERA [Suspect]
     Active Substance: ADEFOVIR DIPIVOXIL
     Indication: Hepatitis B
     Dosage: 10 MG, QD
     Route: 048
     Dates: start: 20090413, end: 20160413
  2. LAMIVUDINE [Suspect]
     Active Substance: LAMIVUDINE
     Indication: Hepatitis B
     Dosage: UNK
     Route: 048

REACTIONS (6)
  - Renal impairment [Recovering/Resolving]
  - Platelet count decreased [Recovering/Resolving]
  - Urine analysis abnormal [Unknown]
  - Chronic kidney disease [Unknown]
  - Nephropathy [Unknown]
  - Glomerulonephritis [Unknown]

NARRATIVE: CASE EVENT DATE: 20160413
